FAERS Safety Report 10218789 (Version 2)
Quarter: 2014Q2

REPORT INFORMATION
  Report Type: Spontaneous
  Country: AU (occurrence: AU)
  Receive Date: 20140605
  Receipt Date: 20140619
  Transmission Date: 20141212
  Serious: Yes (Death)
  Sender: FDA-Public Use
  Company Number: AU-CELGENEUS-008-21660-14054487

PATIENT
  Sex: Male
  Weight: 57 kg

DRUGS (2)
  1. ABRAXANE [Suspect]
     Indication: PANCREATIC CARCINOMA METASTATIC
     Route: 041
     Dates: start: 20140220, end: 20140403
  2. GEMCITABINE [Suspect]
     Indication: PANCREATIC CARCINOMA METASTATIC
     Route: 043
     Dates: start: 20140220, end: 20140403

REACTIONS (2)
  - Pneumocystis jirovecii pneumonia [Fatal]
  - Pneumonitis [Fatal]
